FAERS Safety Report 7211306-5 (Version None)
Quarter: 2011Q1

REPORT INFORMATION
  Report Type: 
  Country: None (occurrence: None)
  Receive Date: 20110105
  Receipt Date: 20101231
  Transmission Date: 20110831
  Serious: Yes (Death)
  Sender: FDA-Public Use
  Company Number: US-PFIZER INC-2011000653

PATIENT
  Age: 59 Year
  Sex: Female

DRUGS (10)
  1. SERTRALINE HYDROCHLORIDE [Suspect]
     Route: 048
  2. CLONIDINE [Suspect]
     Route: 048
  3. ACETAMINOPHEN AND HYDROCODONE BITARTRATE [Suspect]
     Route: 048
  4. EZETIMIBE/SIMVASTATIN [Suspect]
     Route: 048
  5. PROMETHAZINE HYDROCHLORIDE [Suspect]
     Route: 048
  6. LEVOTHYROXINE [Suspect]
     Route: 048
  7. FENOFIBRATE [Suspect]
     Route: 048
  8. AMLODIPINE BESYLATE [Suspect]
     Route: 048
  9. LAMOTRIGINE [Suspect]
     Route: 048
  10. TRANDOLAPRIL AND VERAPAMIL HYDROCHLORIDE [Suspect]
     Route: 048

REACTIONS (2)
  - INTENTIONAL DRUG MISUSE [None]
  - COMPLETED SUICIDE [None]
